FAERS Safety Report 23841673 (Version 1)
Quarter: 2024Q2

REPORT INFORMATION
  Report Type: Spontaneous
  Country: CN (occurrence: CN)
  Receive Date: 20240510
  Receipt Date: 20240510
  Transmission Date: 20240715
  Serious: Yes (Hospitalization)
  Sender: FDA-Public Use
  Company Number: CN-ASTELLAS-2024US013282

PATIENT
  Age: 66 Year
  Sex: Male

DRUGS (26)
  1. TACROLIMUS [Interacting]
     Active Substance: TACROLIMUS
     Indication: Allogenic stem cell transplantation
     Dosage: 2 MG, EVERY 12 HOURS (BASELINE)
     Route: 065
  2. TACROLIMUS [Interacting]
     Active Substance: TACROLIMUS
     Dosage: 1.5 MG, EVERY 12 HOURS (DAY1 AFTER ADMISSION)
     Route: 065
  3. TACROLIMUS [Interacting]
     Active Substance: TACROLIMUS
     Dosage: 1.5 MG, EVERY 12 HOURS (DAY2 AFTER ADMISSION)
     Route: 065
  4. TACROLIMUS [Interacting]
     Active Substance: TACROLIMUS
     Dosage: 0.5 MG, EVERY 12 HOURS (DAY7 AFTER ADMISSION)
     Route: 065
  5. TACROLIMUS [Interacting]
     Active Substance: TACROLIMUS
     Dosage: 0.5 MG/1 MG, UNKNOWN FREQ. (DAY 8 AFTER ADMISSION)
     Route: 065
  6. TACROLIMUS [Interacting]
     Active Substance: TACROLIMUS
     Dosage: 1 MG, EVERY 12 HOURS (DAY 9 AFTER ADMISSION)
     Route: 065
  7. TACROLIMUS [Interacting]
     Active Substance: TACROLIMUS
     Dosage: 1 MG, EVERY 12 HOURS (DAY 10 AFTER ADMISSION)
     Route: 065
  8. TACROLIMUS [Interacting]
     Active Substance: TACROLIMUS
     Dosage: 1 MG/1.5 MG, UNKNOWN FREQ. (DAY 11 AFTER ADMISSION)
     Route: 065
  9. ISAVUCONAZOLE [Interacting]
     Active Substance: ISAVUCONAZOLE
     Indication: Antifungal prophylaxis
     Dosage: 200 MG, ONCE DAILY (BASELINSE)
     Route: 048
  10. ISAVUCONAZOLE [Interacting]
     Active Substance: ISAVUCONAZOLE
     Dosage: 200 MG, ONCE DAILY (DAY 1)
     Route: 048
  11. ISAVUCONAZOLE [Interacting]
     Active Substance: ISAVUCONAZOLE
     Dosage: 200 MG, ONCE DAILY (DAY 2)
     Route: 048
  12. ISAVUCONAZOLE [Interacting]
     Active Substance: ISAVUCONAZOLE
     Dosage: 200 MG, ONCE DAILY (DAY 3)
     Route: 048
  13. ISAVUCONAZOLE [Interacting]
     Active Substance: ISAVUCONAZOLE
     Dosage: 200 MG, ONCE DAILY (DAY 4)
     Route: 048
  14. ISAVUCONAZOLE [Interacting]
     Active Substance: ISAVUCONAZOLE
     Dosage: 100 MG, ONCE DAILY (DAY 5)
     Route: 048
  15. ISAVUCONAZOLE [Interacting]
     Active Substance: ISAVUCONAZOLE
     Dosage: 100 MG, ONCE DAILY (DAY 6)
     Route: 048
  16. ISAVUCONAZOLE [Interacting]
     Active Substance: ISAVUCONAZOLE
     Dosage: 100 MG, ONCE DAILY (DAY 7)
     Route: 048
  17. ISAVUCONAZOLE [Interacting]
     Active Substance: ISAVUCONAZOLE
     Dosage: 100 MG, ONCE DAILY (DAY 8)
     Route: 048
  18. ISAVUCONAZOLE [Interacting]
     Active Substance: ISAVUCONAZOLE
     Dosage: 200 MG, ONCE DAILY (DAY 9)
     Route: 048
  19. ISAVUCONAZOLE [Interacting]
     Active Substance: ISAVUCONAZOLE
     Dosage: 200 MG, ONCE DAILY (DAY 10)
     Route: 048
  20. ISAVUCONAZOLE [Interacting]
     Active Substance: ISAVUCONAZOLE
     Dosage: 200 MG, ONCE DAILY (DAY 11)
     Route: 048
  21. NIRMATRELVIR\RITONAVIR [Interacting]
     Active Substance: NIRMATRELVIR\RITONAVIR
     Indication: COVID-19
     Dosage: NIRMATRELVIR 300 MG AND RITONAVIR 100 MG TWICE A DAY (DAY 1)
     Route: 065
  22. NIRMATRELVIR\RITONAVIR [Interacting]
     Active Substance: NIRMATRELVIR\RITONAVIR
     Dosage: NIRMATRELVIR 300 MG AND RITONAVIR 100 MG TWICE A DAY (DAY 2)
     Route: 065
  23. NIRMATRELVIR\RITONAVIR [Interacting]
     Active Substance: NIRMATRELVIR\RITONAVIR
     Dosage: NIRMATRELVIR 300 MG AND RITONAVIR 100 MG TWICE A DAY (DAY 3)
     Route: 065
  24. NIRMATRELVIR\RITONAVIR [Interacting]
     Active Substance: NIRMATRELVIR\RITONAVIR
     Dosage: NIRMATRELVIR 300 MG AND RITONAVIR 100 MG TWICE A DAY (DAY 4)
     Route: 065
  25. NIRMATRELVIR\RITONAVIR [Interacting]
     Active Substance: NIRMATRELVIR\RITONAVIR
     Dosage: NIRMATRELVIR 300 MG AND RITONAVIR 100 MG TWICE A DAY (DAY 5)
     Route: 065
  26. MYCOPHENOLATE SODIUM [Concomitant]
     Active Substance: MYCOPHENOLATE SODIUM
     Indication: Renal transplant
     Dosage: 0.36 G, EVERY 12 HOURS
     Route: 065

REACTIONS (6)
  - Toxicity to various agents [Recovered/Resolved]
  - Blood creatinine increased [Recovered/Resolved]
  - COVID-19 [Unknown]
  - Drug interaction [Unknown]
  - Drug interaction [Unknown]
  - Off label use [Unknown]
